FAERS Safety Report 7588177-0 (Version None)
Quarter: 2011Q3

REPORT INFORMATION
  Report Type: 
  Country: None (occurrence: None)
  Receive Date: 20110705
  Receipt Date: 20110622
  Transmission Date: 20111222
  Serious: Yes (Hospitalization, Other)
  Sender: FDA-Public Use
  Company Number: US-BAYER-201042073NA

PATIENT
  Age: 16 Year
  Sex: Female
  Weight: 61.678 kg

DRUGS (4)
  1. YAZ [Suspect]
     Indication: CONTRACEPTION
  2. YAZ [Suspect]
     Indication: ACNE
     Route: 048
     Dates: start: 20080127, end: 20090924
  3. AMOXICILLIN [Concomitant]
  4. CONCERTA [Concomitant]

REACTIONS (8)
  - PANCREATITIS [None]
  - CHOLECYSTECTOMY [None]
  - CHOLECYSTITIS CHRONIC [None]
  - BILE DUCT OBSTRUCTION [None]
  - GALLBLADDER CHOLESTEROLOSIS [None]
  - CHOLELITHIASIS [None]
  - PAIN [None]
  - PANCREATITIS ACUTE [None]
